FAERS Safety Report 4406272-1 (Version None)
Quarter: 2004Q3

REPORT INFORMATION
  Report Type: 
  Country: None (occurrence: None)
  Receive Date: 20040723
  Receipt Date: 20030602
  Transmission Date: 20050211
  Serious: No
  Sender: FDA-Public Use
  Company Number: US-GLAXOSMITHKLINE-A0410370A

PATIENT
  Age: 57 Year
  Sex: Female

DRUGS (9)
  1. AVANDIA [Suspect]
     Route: 048
     Dates: start: 20030516
  2. GLUCOTROL [Concomitant]
     Dosage: 10MG TWICE PER DAY
     Route: 048
  3. VERAPAMIL [Concomitant]
     Dosage: 180MG TWICE PER DAY
     Route: 048
  4. TRAMADOL [Concomitant]
     Dosage: 50MG FOUR TIMES PER DAY
     Route: 048
  5. SYNTHROID [Concomitant]
  6. TRIAMT + HCTZ [Concomitant]
  7. DIOVAN [Concomitant]
  8. ALBUTEROL [Concomitant]
  9. SEREVENT [Concomitant]

REACTIONS (2)
  - BLOOD GLUCOSE DECREASED [None]
  - TREMOR [None]
